FAERS Safety Report 8375002-3 (Version None)
Quarter: 2012Q2

REPORT INFORMATION
  Report Type: 
  Country: None (occurrence: None)
  Receive Date: 20120521
  Receipt Date: 20120518
  Transmission Date: 20120825
  Serious: Yes (Hospitalization)
  Sender: FDA-Public Use
  Company Number: US-ROCHE-GNE324596

PATIENT
  Age: 79 Year
  Sex: Female
  Weight: 80.5 kg

DRUGS (8)
  1. DCDT2980S (ANTI-CD22-VC-MMAE) [Suspect]
     Indication: NON-HODGKIN'S LYMPHOMA
     Route: 042
     Dates: start: 20110829
  2. DILTIAZEM [Suspect]
     Indication: PRODUCT USED FOR UNKNOWN INDICATION
     Dates: start: 20100101
  3. FUROSEMIDE [Suspect]
     Indication: PRODUCT USED FOR UNKNOWN INDICATION
     Dates: start: 20070101
  4. LASIX [Suspect]
  5. CANDESARTAN CILEXETIL [Suspect]
     Indication: HYPERTENSION
     Dates: start: 20070101
  6. LEVOTHYROXINE SODIUM [Suspect]
  7. RABEPRAZOLE SODIUM [Suspect]
  8. PAROXETINE [Suspect]

REACTIONS (2)
  - CARDIAC FAILURE CONGESTIVE [None]
  - PLEURAL EFFUSION [None]
